FAERS Safety Report 12791465 (Version 3)
Quarter: 2017Q1

REPORT INFORMATION
  Report Type: Report from Study
  Country: US (occurrence: US)
  Receive Date: 20160929
  Receipt Date: 20170109
  Transmission Date: 20170428
  Serious: Yes (Other)
  Sender: FDA-Public Use
  Company Number: US-MALLINCKRODT-T201604488

PATIENT
  Sex: Female

DRUGS (1)
  1. REPOSITORY CORTICOTROPIN INJECTION [Suspect]
     Active Substance: CORTICOTROPIN
     Indication: IGA NEPHROPATHY
     Dosage: 40 UNITS/0.5 ML TWICE WEKLY (SUN/WED)
     Route: 058
     Dates: start: 20151118

REACTIONS (6)
  - Device issue [Not Recovered/Not Resolved]
  - Intestinal obstruction [Recovered/Resolved]
  - Abdominal infection [Recovering/Resolving]
  - Diarrhoea [Recovered/Resolved]
  - Complication associated with device [Recovered/Resolved]
  - Incision site complication [Recovering/Resolving]

NARRATIVE: CASE EVENT DATE: 2016
